FAERS Safety Report 6969266-8 (Version None)
Quarter: 2010Q3

REPORT INFORMATION
  Report Type: 
  Country: None (occurrence: None)
  Receive Date: 20100907
  Receipt Date: 20100824
  Transmission Date: 20110219
  Serious: Yes (Hospitalization)
  Sender: FDA-Public Use
  Company Number: CH-ELI_LILLY_AND_COMPANY-CH201007000159

PATIENT
  Age: 21 Year
  Sex: Female
  Weight: 46 kg

DRUGS (5)
  1. CYMBALTA [Suspect]
     Indication: DEPRESSION
     Dosage: 60 MG, DAILY (1/D)
     Route: 048
     Dates: start: 20091209, end: 20091214
  2. SEROQUEL [Concomitant]
     Dosage: 50 MG, DAILY (1/D)
     Route: 048
     Dates: start: 20091208, end: 20091216
  3. EFFEXOR [Concomitant]
     Indication: DEPRESSION
     Dosage: 75 MG, UNKNOWN
     Route: 065
     Dates: start: 20091120, end: 20091208
  4. REMERON [Concomitant]
     Indication: DEPRESSION
     Dosage: 15 MG, DAILY (1/D)
     Route: 065
     Dates: start: 20091118, end: 20091207
  5. REMERON [Concomitant]
     Dosage: UNK, UNKNOWN
     Route: 065
     Dates: start: 20091219, end: 20091220

REACTIONS (6)
  - BOWEL MOVEMENT IRREGULARITY [None]
  - DIARRHOEA [None]
  - HYPERTHYROIDISM [None]
  - NAUSEA [None]
  - RASH [None]
  - SINUS TACHYCARDIA [None]
